FAERS Safety Report 7361990-0 (Version None)
Quarter: 2011Q1

REPORT INFORMATION
  Report Type: 
  Country: None (occurrence: None)
  Receive Date: 20110318
  Receipt Date: 20110316
  Transmission Date: 20110831
  Serious: Yes (Other)
  Sender: FDA-Public Use
  Company Number: US-ELI_LILLY_AND_COMPANY-US201011000849

PATIENT
  Sex: Female

DRUGS (5)
  1. NOVOLIN 70/30 [Concomitant]
     Indication: DIABETES MELLITUS
  2. HUMULIN N [Suspect]
     Dosage: 13 U, EACH MORNING
     Dates: start: 20051101
  3. HUMULIN N [Suspect]
     Indication: DIABETES MELLITUS
     Dosage: 13 U, EACH MORNING
     Dates: start: 20051101
  4. METFORMIN HCL [Concomitant]
     Indication: DIABETES MELLITUS
  5. NOVOLOG [Concomitant]

REACTIONS (5)
  - MEDICATION ERROR [None]
  - DRUG INEFFECTIVE [None]
  - BLOOD GLUCOSE INCREASED [None]
  - LUNG NEOPLASM MALIGNANT [None]
  - INCORRECT STORAGE OF DRUG [None]
